FAERS Safety Report 6380523-9 (Version None)
Quarter: 2009Q3

REPORT INFORMATION
  Report Type: 
  Country: None (occurrence: None)
  Receive Date: 20090923
  Receipt Date: 20090909
  Transmission Date: 20100115
  Serious: Yes (Hospitalization)
  Sender: FDA-Public Use
  Company Number: 8048267

PATIENT
  Age: 68 Year
  Sex: Female
  Weight: 50 kg

DRUGS (4)
  1. KEPPRA [Suspect]
     Indication: EPILEPSY
     Dosage: 1000 MG 2/D PO
     Route: 048
     Dates: start: 20070101
  2. VASTAREL [Concomitant]
  3. TAHOR [Concomitant]
  4. PROTELOS [Concomitant]

REACTIONS (7)
  - ABDOMINAL PAIN UPPER [None]
  - COUGH [None]
  - ERUCTATION [None]
  - GASTRIC DILATATION [None]
  - HEADACHE [None]
  - NAUSEA [None]
  - WEIGHT DECREASED [None]
